FAERS Safety Report 18696792 (Version 2)
Quarter: 2021Q2

REPORT INFORMATION
  Report Type: Spontaneous
  Country: DE (occurrence: DE)
  Receive Date: 20210104
  Receipt Date: 20210403
  Transmission Date: 20210717
  Serious: Yes (Hospitalization)
  Sender: FDA-Public Use
  Company Number: NVSC2020DE344038

PATIENT
  Age: 43 Year
  Sex: Female
  Weight: 89 kg

DRUGS (10)
  1. BACLOFEN. [Suspect]
     Active Substance: BACLOFEN
     Indication: WRONG PATIENT RECEIVED PRODUCT
     Dosage: 25 MG 1 TOTAL
     Route: 065
     Dates: start: 20201216, end: 20201216
  2. LAMOTRIGINE. [Suspect]
     Active Substance: LAMOTRIGINE
     Indication: WRONG PATIENT RECEIVED PRODUCT
     Dosage: 50 MG 1 TOTAL
     Route: 065
     Dates: start: 20201216, end: 20201216
  3. LEVOTHYROXINE. [Suspect]
     Active Substance: LEVOTHYROXINE
     Indication: WRONG PATIENT RECEIVED PRODUCT
     Dosage: 0.1 MG 1 TOTAL
     Route: 065
     Dates: start: 20201216, end: 20201216
  4. LORAZEPAM. [Suspect]
     Active Substance: LORAZEPAM
     Indication: WRONG PATIENT RECEIVED PRODUCT
     Dosage: 1 MG 1 TOTAL
     Route: 065
     Dates: start: 20201216, end: 20201216
  5. FYCOMPA [Suspect]
     Active Substance: PERAMPANEL
     Indication: WRONG PATIENT RECEIVED PRODUCT
     Dosage: 6 MG 1 TOTAL
     Route: 048
     Dates: start: 20201216, end: 20201216
  6. VITAMIN D [Suspect]
     Active Substance: VITAMIN D NOS
     Indication: WRONG PATIENT RECEIVED PRODUCT
     Dosage: 1000 IU 1 TOTAL
     Route: 065
     Dates: start: 20201216, end: 20201216
  7. FOLIC ACID. [Suspect]
     Active Substance: FOLIC ACID
     Indication: WRONG PATIENT RECEIVED PRODUCT
     Dosage: 5 MG 1 TOTAL
     Route: 065
     Dates: start: 20201216, end: 20201216
  8. TOPIRAMATE. [Concomitant]
     Active Substance: TOPIRAMATE
     Indication: PRODUCT USED FOR UNKNOWN INDICATION
     Dosage: UNK
     Route: 065
  9. LEVETIRACETAM. [Suspect]
     Active Substance: LEVETIRACETAM
     Indication: WRONG PATIENT RECEIVED PRODUCT
     Dosage: 500 MG 1 TOTAL
     Route: 065
     Dates: start: 20201216, end: 20201216
  10. LACOSAMIDE. [Suspect]
     Active Substance: LACOSAMIDE
     Indication: PRODUCT USED FOR UNKNOWN INDICATION
     Dosage: UNK
     Route: 065

REACTIONS (3)
  - Wrong patient received product [Unknown]
  - Fatigue [Unknown]
  - Hypotension [Unknown]

NARRATIVE: CASE EVENT DATE: 20201216
